FAERS Safety Report 4603169-9 (Version None)
Quarter: 2005Q1

REPORT INFORMATION
  Report Type: 
  Country: None (occurrence: None)
  Receive Date: 20050307
  Receipt Date: 20050218
  Transmission Date: 20050727
  Serious: Yes (Other)
  Sender: FDA-Public Use
  Company Number: CA-2005-002422

PATIENT
  Age: 45 Year
  Sex: Male

DRUGS (3)
  1. BETASERON [Suspect]
     Indication: MULTIPLE SCLEROSIS
     Dosage: 8 MIU, EVERY 2D, SUBCUTANEOUS
     Route: 058
     Dates: start: 20030101
  2. EFFEXOR [Concomitant]
  3. VIAGRA [Concomitant]

REACTIONS (3)
  - BACK PAIN [None]
  - NEOPLASM MALIGNANT [None]
  - PROSTATE CANCER METASTATIC [None]
